FAERS Safety Report 15033076 (Version 1)
Quarter: 2018Q3

REPORT INFORMATION
  Report Type: Spontaneous
  Country: US (occurrence: US)
  Receive Date: 20180619
  Receipt Date: 20180619
  Transmission Date: 20181010
  Serious: No
  Sender: FDA-Public Use
  Company Number: US-AVADEL SPECIALTY PHARMACEUTICALS, LLC-2018AVA00051

PATIENT
  Sex: Male

DRUGS (2)
  1. NOCTIVA [Suspect]
     Active Substance: DESMOPRESSIN ACETATE
     Dosage: UNK
     Route: 045
     Dates: start: 20180506, end: 20180506
  2. NOCTIVA [Suspect]
     Active Substance: DESMOPRESSIN ACETATE
     Indication: NOCTURIA
     Dosage: UNK
     Route: 045
     Dates: start: 20180504, end: 20180504

REACTIONS (4)
  - Instillation site pain [None]
  - Nasal discomfort [Unknown]
  - Eye irritation [Unknown]
  - Drug ineffective [Recovered/Resolved]

NARRATIVE: CASE EVENT DATE: 20180504
